FAERS Safety Report 4318672-9 (Version None)
Quarter: 2004Q1

REPORT INFORMATION
  Report Type: 
  Country: None (occurrence: None)
  Receive Date: 20040315
  Receipt Date: 20040224
  Transmission Date: 20041129
  Serious: Yes (Hospitalization)
  Sender: FDA-Public Use
  Company Number: B0325184A

PATIENT
  Age: 37 Year
  Sex: Male

DRUGS (4)
  1. ZIAGEN [Suspect]
     Indication: HIV INFECTION
     Dosage: UNK, UNKNOWN; UNKNOWN
     Route: 065
  2. DIDANOSINE [Concomitant]
  3. STAVUDINE [Concomitant]
  4. EFAVIRENZ [Concomitant]

REACTIONS (17)
  - ALANINE AMINOTRANSFERASE INCREASED [None]
  - ASPARTATE AMINOTRANSFERASE INCREASED [None]
  - ASTHENIA [None]
  - BLOOD ALKALINE PHOSPHATASE INCREASED [None]
  - BLOOD LACTATE DEHYDROGENASE INCREASED [None]
  - BLOOD TRIGLYCERIDES INCREASED [None]
  - DERMATITIS EXFOLIATIVE [None]
  - DRUG HYPERSENSITIVITY [None]
  - DYSPNOEA [None]
  - GAMMA-GLUTAMYLTRANSFERASE INCREASED [None]
  - LYMPHADENOPATHY [None]
  - LYMPHOCYTE MORPHOLOGY ABNORMAL [None]
  - MUCOSAL INFLAMMATION [None]
  - MYALGIA [None]
  - ODYNOPHAGIA [None]
  - PLATELET COUNT DECREASED [None]
  - PYREXIA [None]
